FAERS Safety Report 8972512 (Version 2)
Quarter: 2013Q2

REPORT INFORMATION
  Report Type: Report from Study
  Country: US (occurrence: US)
  Receive Date: 20121218
  Receipt Date: 20130422
  Transmission Date: 20140414
  Serious: Yes (Death, Hospitalization)
  Sender: FDA-Public Use
  Company Number: US-ROCHE-1169083

PATIENT
  Age: 63 Year
  Sex: Female
  Weight: 56.4 kg

DRUGS (2)
  1. ERLOTINIB [Suspect]
     Indication: HEREDITARY LEIOMYOMATOSIS RENAL CELL CARCINOMA
     Dosage: LAST DOSE PRIOR TO SAE- 10/DEC/2012
     Route: 065
  2. BEVACIZUMAB [Suspect]
     Indication: HEREDITARY LEIOMYOMATOSIS RENAL CELL CARCINOMA
     Dosage: LAST DOSE PRIOR TO SAE- 28/NOV/2012
     Route: 042

REACTIONS (2)
  - Septic shock [Fatal]
  - Gastrointestinal haemorrhage [Fatal]
